FAERS Safety Report 7275439-X (Version None)
Quarter: 2011Q1

REPORT INFORMATION
  Report Type: 
  Country: None (occurrence: None)
  Receive Date: 20110202
  Receipt Date: 20110202
  Transmission Date: 20110831
  Serious: Yes (Life-Threatening)
  Sender: FDA-Public Use
  Company Number: None

PATIENT
  Age: 79 Year
  Sex: Female
  Weight: 52.1637 kg

DRUGS (1)
  1. CIPROFLOXACIN [Suspect]
     Indication: LOCALISED INFECTION
     Dosage: 2 TABLETS TWICE PER DAY
     Dates: start: 20101206, end: 20101212

REACTIONS (3)
  - DYSPNOEA [None]
  - TENDONITIS [None]
  - DISCOMFORT [None]
